FAERS Safety Report 9733168 (Version 1)
Quarter: 2013Q4

REPORT INFORMATION
  Report Type: Spontaneous
  Country: CA (occurrence: CA)
  Receive Date: 20131204
  Receipt Date: 20131204
  Transmission Date: 20140711
  Serious: Yes (Hospitalization, Other)
  Sender: FDA-Public Use
  Company Number: CHPA2013CA017802

PATIENT
  Age: 66 Year
  Sex: Female

DRUGS (2)
  1. HABITROL [Suspect]
     Indication: SMOKING CESSATION THERAPY
     Dosage: 21 MG, QD
     Route: 062
     Dates: start: 20130527, end: 20131103
  2. ASPIRIN [Concomitant]
     Dosage: 81 MG, UNK
     Route: 065

REACTIONS (3)
  - Pneumothorax traumatic [Recovered/Resolved]
  - Lung neoplasm malignant [Unknown]
  - Treatment noncompliance [Unknown]
